FAERS Safety Report 7549507-9 (Version None)
Quarter: 2011Q2

REPORT INFORMATION
  Report Type: 
  Country: None (occurrence: None)
  Receive Date: 20110615
  Receipt Date: 20050110
  Transmission Date: 20111010
  Serious: Yes (Death, Hospitalization, Other)
  Sender: FDA-Public Use
  Company Number: PHFR2004IE04420

PATIENT
  Sex: Male

DRUGS (3)
  1. CLOZAPINE [Suspect]
     Indication: SCHIZOPHRENIA
     Dosage: 550MG/DAY
     Dates: start: 20030123
  2. VALPROATE SODIUM [Concomitant]
     Indication: EPILEPSY
     Dosage: 500MG/DAY
     Route: 048
     Dates: start: 20020201
  3. VENLAFAXINE [Concomitant]
     Indication: DEPRESSION
     Dates: start: 20040422

REACTIONS (6)
  - INTESTINAL ISCHAEMIA [None]
  - VOMITING [None]
  - NAUSEA [None]
  - CARDIAC ARREST [None]
  - CIRCULATORY COLLAPSE [None]
  - LOWER RESPIRATORY TRACT INFECTION [None]
